FAERS Safety Report 11107048 (Version 1)
Quarter: 2015Q2

REPORT INFORMATION
  Report Type: Spontaneous
  Country: US (occurrence: None)
  Receive Date: 20150511
  Receipt Date: 20150511
  Transmission Date: 20150821
  Serious: Yes (Life-Threatening, Hospitalization, Disabling, Other)
  Sender: FDA-Public Use
  Company Number: None

PATIENT
  Age: 44 Year
  Sex: Male

DRUGS (6)
  1. BABY ASPIRIN [Concomitant]
     Active Substance: ASPIRIN
  2. TYLENOL [Concomitant]
     Active Substance: ACETAMINOPHEN
  3. ASPIRIN STOOL SOFTNER [Concomitant]
  4. LOWERTAB [Concomitant]
  5. ACCUTANE [Suspect]
     Active Substance: ISOTRETINOIN
     Indication: ACNE
     Dates: start: 19950101, end: 20150508
  6. LYRICA [Concomitant]
     Active Substance: PREGABALIN

REACTIONS (11)
  - Cardiomegaly [None]
  - Musculoskeletal disorder [None]
  - Pain [None]
  - Nervous system disorder [None]
  - Seizure [None]
  - Arterial occlusive disease [None]
  - Venous occlusion [None]
  - Impaired work ability [None]
  - Migraine [None]
  - Headache [None]
  - Head injury [None]

NARRATIVE: CASE EVENT DATE: 20150508
